FAERS Safety Report 13182682 (Version 3)
Quarter: 2018Q4

REPORT INFORMATION
  Report Type: Spontaneous
  Country: US (occurrence: US)
  Receive Date: 20170203
  Receipt Date: 20181207
  Transmission Date: 20190204
  Serious: Yes (Hospitalization)
  Sender: FDA-Public Use
  Company Number: US-PFIZER INC-2017048666

PATIENT
  Age: 57 Year
  Sex: Female
  Weight: 61 kg

DRUGS (4)
  1. HYDROCODONE [Concomitant]
     Active Substance: HYDROCODONE
     Indication: PAIN
     Dosage: 10/325MG BY MOUTH 1-2 EVERY 6 HOURS NOT TOO EXCEED 8 PER DAY
     Route: 048
     Dates: start: 2002
  2. GABAPENTIN. [Suspect]
     Active Substance: GABAPENTIN
     Indication: NERVE INJURY
     Dosage: 300 MG, UNK
     Dates: start: 2002, end: 2002
  3. GABAPENTIN. [Suspect]
     Active Substance: GABAPENTIN
     Dosage: UNK UNK, AS NEEDED 1-2 CAPSULES UP TO 4 TIMES DAILY,
     Route: 048
  4. FENTANYL. [Concomitant]
     Active Substance: FENTANYL
     Indication: PAIN
     Dosage: UNK
     Dates: start: 2002

REACTIONS (5)
  - Affect lability [Unknown]
  - Depersonalisation/derealisation disorder [Recovered/Resolved]
  - Mental disorder [Recovered/Resolved]
  - Feeling abnormal [Recovered/Resolved]
  - Drug ineffective for unapproved indication [Recovered/Resolved]

NARRATIVE: CASE EVENT DATE: 2002
